FAERS Safety Report 22028799 (Version 2)
Quarter: 2023Q1

REPORT INFORMATION
  Report Type: Spontaneous
  Country: IN (occurrence: IN)
  Receive Date: 20230223
  Receipt Date: 20230301
  Transmission Date: 20230418
  Serious: Yes (Death, Life-Threatening, Other)
  Sender: FDA-Public Use
  Company Number: IN-MLMSERVICE-20230214-4102898-1

PATIENT
  Age: 36 Year
  Sex: Female

DRUGS (3)
  1. DOXORUBICIN HYDROCHLORIDE [Suspect]
     Active Substance: DOXORUBICIN HYDROCHLORIDE
     Indication: Vaginal cancer
     Dosage: (AIM REGIMEN)CYCLIC
  2. IFOSFAMIDE [Suspect]
     Active Substance: IFOSFAMIDE
     Indication: Vaginal cancer
     Dosage: (AIM REGIMEN)CYCLIC
  3. MESNA [Suspect]
     Active Substance: MESNA
     Indication: Vaginal cancer
     Dosage: (AIM REGIMEN)CYCLIC

REACTIONS (1)
  - Acute kidney injury [Fatal]
